FAERS Safety Report 5310506-9 (Version None)
Quarter: 2007Q2

REPORT INFORMATION
  Report Type: 
  Country: None (occurrence: None)
  Receive Date: 20070427
  Receipt Date: 20070417
  Transmission Date: 20071010
  Serious: Yes (Other)
  Sender: FDA-Public Use
  Company Number: FR-PFIZER INC-2007031544

PATIENT
  Age: 41 Year
  Sex: Female

DRUGS (1)
  1. CHAMPIX [Suspect]
     Dates: start: 20070301, end: 20070417

REACTIONS (7)
  - ALANINE AMINOTRANSFERASE INCREASED [None]
  - ARTHRALGIA [None]
  - BLOOD CREATINE PHOSPHOKINASE INCREASED [None]
  - FATIGUE [None]
  - HEPATIC FUNCTION ABNORMAL [None]
  - HYPOTENSION [None]
  - MYALGIA [None]
